FAERS Safety Report 17946852 (Version 1)
Quarter: 2020Q2

REPORT INFORMATION
  Report Type: Spontaneous
  Country: US (occurrence: US)
  Receive Date: 20200625
  Receipt Date: 20200625
  Transmission Date: 20200714
  Serious: Yes (Other)
  Sender: FDA-Public Use
  Company Number: US-CELGENEUS-USA-20200605702

PATIENT
  Sex: Male

DRUGS (4)
  1. THALIDOMIDE [Suspect]
     Active Substance: THALIDOMIDE
     Indication: LEPROMATOUS LEPROSY
     Dosage: 100 MILLIGRAM
     Route: 048
     Dates: start: 201703
  2. THALIDOMIDE [Suspect]
     Active Substance: THALIDOMIDE
     Dosage: 50 MILLIGRAM
     Route: 048
     Dates: start: 201712
  3. THALIDOMIDE [Suspect]
     Active Substance: THALIDOMIDE
     Dosage: 100-150 MILLIGRAM
     Route: 048
     Dates: start: 201811
  4. THALIDOMIDE [Suspect]
     Active Substance: THALIDOMIDE
     Dosage: 100 MILLIGRAM
     Route: 048
     Dates: start: 202005

REACTIONS (1)
  - Pregnancy of partner [Unknown]
